FAERS Safety Report 25970829 (Version 1)
Quarter: 2025Q4

REPORT INFORMATION
  Report Type: Spontaneous
  Country: US (occurrence: US)
  Receive Date: 20251028
  Receipt Date: 20251028
  Transmission Date: 20260117
  Serious: Yes (Other)
  Sender: INCYTE
  Company Number: US-EVENT-004746

PATIENT

DRUGS (1)
  1. ZYNYZ [Suspect]
     Active Substance: RETIFANLIMAB-DLWR
     Dosage: UNK
     Route: 065

REACTIONS (1)
  - Breast cancer [Unknown]
